FAERS Safety Report 7684239-8 (Version None)
Quarter: 2011Q3

REPORT INFORMATION
  Report Type: 
  Country: None (occurrence: None)
  Receive Date: 20110815
  Receipt Date: 20110808
  Transmission Date: 20111222
  Serious: Yes (Other)
  Sender: FDA-Public Use
  Company Number: US-ALLERGAN-1109138US

PATIENT
  Age: 56 Year
  Sex: Male
  Weight: 72.562 kg

DRUGS (8)
  1. BOTULINUM TOXIN TYPE A [Suspect]
  2. ATENOLOL [Concomitant]
     Dosage: 50 MG, UNK
  3. BOTULINUM TOXIN TYPE A [Suspect]
     Dosage: 150 UNITS, SINGLE
     Route: 030
     Dates: start: 20110621, end: 20110621
  4. OXYCONTIN [Concomitant]
     Dosage: 60 MG, Q8HR
  5. OMEPRAZOLE [Concomitant]
     Dosage: 20 MG, UNK
  6. BOTULINUM TOXIN TYPE A [Suspect]
     Indication: TORTICOLLIS
     Dosage: 300 UNITS, SINGLE
     Route: 030
     Dates: start: 20110621, end: 20110621
  7. BOTULINUM TOXIN TYPE A [Suspect]
  8. OXYCODONE HCL [Concomitant]
     Dosage: 15 MG, Q4HR

REACTIONS (13)
  - MUSCULAR WEAKNESS [None]
  - DRUG INEFFECTIVE [None]
  - ASTHENIA [None]
  - COUGH [None]
  - ABDOMINAL PAIN [None]
  - CHILLS [None]
  - DIARRHOEA [None]
  - STRESS [None]
  - BACK PAIN [None]
  - NECK PAIN [None]
  - PYREXIA [None]
  - PAIN IN EXTREMITY [None]
  - VOMITING [None]
